FAERS Safety Report 10950672 (Version 4)
Quarter: 2015Q3

REPORT INFORMATION
  Report Type: Spontaneous
  Country: US (occurrence: US)
  Receive Date: 20150324
  Receipt Date: 20150821
  Transmission Date: 20151125
  Serious: Yes (Other)
  Sender: FDA-Public Use
  Company Number: US-GLAXOSMITHKLINE-US2015GSK038655

PATIENT
  Sex: Female

DRUGS (11)
  1. TRASTUZUMAB [Concomitant]
     Active Substance: TRASTUZUMAB
  2. COMPAZINE [Concomitant]
     Active Substance: PROCHLORPERAZINE MALEATE
  3. TYKERB [Suspect]
     Active Substance: LAPATINIB DITOSYLATE
     Dosage: 500 MG, QD
     Dates: start: 20140427
  4. DEXAMETHASONE. [Suspect]
     Active Substance: DEXAMETHASONE
     Indication: PRODUCT USED FOR UNKNOWN INDICATION
     Dosage: 4 MG, BID
  5. LEVOTHYROXINE. [Concomitant]
     Active Substance: LEVOTHYROXINE
  6. DEXAMETHASONE. [Suspect]
     Active Substance: DEXAMETHASONE
     Dosage: 6 MG, QD
  7. ZOFRAN ODT [Concomitant]
     Active Substance: ONDANSETRON HYDROCHLORIDE
  8. HYDROCODONE + APAP [Concomitant]
  9. TYKERB [Suspect]
     Active Substance: LAPATINIB DITOSYLATE
     Indication: BREAST CANCER FEMALE
     Dosage: 250 MG, U
  10. ANASTROZOLE. [Concomitant]
     Active Substance: ANASTROZOLE
  11. OMEPRAZOLE. [Concomitant]
     Active Substance: OMEPRAZOLE

REACTIONS (17)
  - Decreased appetite [Unknown]
  - Muscular weakness [Unknown]
  - Malignant neoplasm progression [Unknown]
  - Hospice care [Unknown]
  - Deep vein thrombosis [Unknown]
  - Dysarthria [Unknown]
  - Asthenia [Unknown]
  - Balance disorder [Unknown]
  - Confusional state [Unknown]
  - Fall [Unknown]
  - Mental status changes [Unknown]
  - Nervous system disorder [Unknown]
  - Ataxia [Unknown]
  - Nail injury [Unknown]
  - Myopathy [Unknown]
  - General physical health deterioration [Unknown]
  - Brain oedema [Unknown]
